FAERS Safety Report 15169372 (Version 1)
Quarter: 2018Q3

REPORT INFORMATION
  Report Type: Report from Study
  Country: ES (occurrence: ES)
  Receive Date: 20180720
  Receipt Date: 20180720
  Transmission Date: 20181010
  Serious: Yes (Hospitalization, Other)
  Sender: FDA-Public Use
  Company Number: ES-TEVA-2018-ES-929233

PATIENT
  Age: 67 Year
  Sex: Female

DRUGS (2)
  1. PROPAFENONA HIDROCLORURO (912CH) [Suspect]
     Active Substance: PROPAFENONE
     Indication: ATRIAL FLUTTER
     Dosage: 300 MILLIGRAM DAILY;
     Route: 048
     Dates: start: 20160128, end: 20160130
  2. SINTROM [Interacting]
     Active Substance: ACENOCOUMAROL
     Indication: ATRIAL FLUTTER
     Dosage: 7.5 MILLIGRAM DAILY;
     Route: 048
     Dates: start: 201009, end: 20160130

REACTIONS (3)
  - Syncope [Recovered/Resolved]
  - Drug interaction [Unknown]
  - Bradycardia [Recovered/Resolved]

NARRATIVE: CASE EVENT DATE: 20160130
